FAERS Safety Report 8128135-0 (Version None)
Quarter: 2011Q4

REPORT INFORMATION
  Report Type: 
  Country: None (occurrence: None)
  Receive Date: 20111227
  Receipt Date: 20110825
  Transmission Date: 20120403
  Serious: No
  Sender: FDA-Public Use
  Company Number: PHEH2011US03025

PATIENT
  Age: 29 Year
  Sex: Female

DRUGS (2)
  1. MIRENA [Concomitant]
  2. GILENYA [Suspect]
     Indication: MULTIPLE SCLEROSIS
     Dosage: 0.5 MG/ DAILY, ORAL
     Route: 048
     Dates: start: 20101222

REACTIONS (2)
  - DERMATITIS ACNEIFORM [None]
  - OROPHARYNGEAL PAIN [None]
